FAERS Safety Report 21926084 (Version 1)
Quarter: 2023Q1

REPORT INFORMATION
  Report Type: Spontaneous
  Country: US (occurrence: US)
  Receive Date: 20230130
  Receipt Date: 20230130
  Transmission Date: 20230417
  Serious: No
  Sender: FDA-Public Use
  Company Number: US-BIOVITRUM-2022US15979

PATIENT
  Age: 13 Year
  Sex: Male

DRUGS (1)
  1. KINERET [Suspect]
     Active Substance: ANAKINRA
     Indication: Juvenile idiopathic arthritis
     Dates: start: 20220623

REACTIONS (3)
  - Neck mass [Unknown]
  - Product use issue [Unknown]
  - Off label use [Unknown]

NARRATIVE: CASE EVENT DATE: 20220601
